FAERS Safety Report 4767572-9 (Version None)
Quarter: 2005Q3

REPORT INFORMATION
  Report Type: 
  Country: None (occurrence: None)
  Receive Date: 20050913
  Receipt Date: 20050907
  Transmission Date: 20060218
  Serious: Yes (Death)
  Sender: FDA-Public Use
  Company Number: US-JNJFOC-20050901881

PATIENT
  Age: 14 Year
  Sex: Male

DRUGS (5)
  1. ACETAMINOPHEN [Suspect]
     Route: 048
  2. ACETAMINOPHEN [Suspect]
     Indication: SUICIDE ATTEMPT
     Route: 048
  3. ACETAMINOPHEN WITH PROPOXYPHENE HCL TAB [Suspect]
     Route: 048
  4. ACETAMINOPHEN WITH PROPOXYPHENE HCL TAB [Suspect]
     Indication: SUICIDE ATTEMPT
     Route: 048
  5. UNSPECIFIED COUGH AND COLD MEDICATION [Suspect]
     Indication: SUICIDE ATTEMPT
     Route: 048

REACTIONS (5)
  - CARDIO-RESPIRATORY ARREST [None]
  - COMPLETED SUICIDE [None]
  - INTENTIONAL MISUSE [None]
  - LABORATORY TEST ABNORMAL [None]
  - OVERDOSE [None]
